FAERS Safety Report 4369848-6 (Version None)
Quarter: 2004Q2

REPORT INFORMATION
  Report Type: 
  Country: None (occurrence: None)
  Receive Date: 20040527
  Receipt Date: 20040514
  Transmission Date: 20050107
  Serious: Yes (Hospitalization, Other)
  Sender: FDA-Public Use
  Company Number: 2004024003

PATIENT
  Age: 40 Year
  Sex: Female

DRUGS (11)
  1. UNASYN [Suspect]
     Indication: INFECTION PROPHYLAXIS
     Dosage: 6 GRAM (3 GRAM, BID), INTRAVENOUS
     Route: 042
     Dates: start: 20040102, end: 20040109
  2. GLUCOSE (GLUCOSE) [Concomitant]
  3. AMINOFLUID (AMINO ACIDS NOS, ELECTROLYTES NOS, GLUCOSE) [Concomitant]
  4. MAGNESIUM SULFATE [Concomitant]
  5. ZOLPIDEM TARTRATE [Concomitant]
  6. POTASSIUM CHLORIDE [Concomitant]
  7. SODIUM BICARBONATE IN PLASTIC CONTAINER [Concomitant]
  8. MARZULENE S (LEVOGLUTAMIDE, SODIUM GUALENATE) [Concomitant]
  9. MEFENAMIC ACID [Concomitant]
  10. DIAZEPAM [Concomitant]
  11. CROTAMITON (CROTAMITON) [Concomitant]

REACTIONS (11)
  - ABSCESS [None]
  - BLOOD CHLORIDE INCREASED [None]
  - BLOOD POTASSIUM DECREASED [None]
  - C-REACTIVE PROTEIN INCREASED [None]
  - CULTURE POSITIVE [None]
  - GAMMA-GLUTAMYLTRANSFERASE INCREASED [None]
  - LYMPHOCYTE STIMULATION TEST POSITIVE [None]
  - PLATELET COUNT DECREASED [None]
  - POSTOPERATIVE INFECTION [None]
  - STAPHYLOCOCCAL INFECTION [None]
  - TOXIC EPIDERMAL NECROLYSIS [None]
